FAERS Safety Report 9092639 (Version 1)
Quarter: 2013Q1

REPORT INFORMATION
  Report Type: Spontaneous
  Country: US (occurrence: US)
  Receive Date: 20130201
  Receipt Date: 20130201
  Transmission Date: 20140127
  Serious: Yes (Other)
  Sender: FDA-Public Use
  Company Number: US-BAYER-2013-009880

PATIENT
  Age: 69 Year
  Sex: Female
  Weight: 82 kg

DRUGS (7)
  1. ALEVE CAPLET/TABLET,MIDOL EXTENDED RELIEF CAPLET [Suspect]
     Indication: NEURALGIA
     Dosage: UNK
     Route: 048
     Dates: start: 20130121
  2. ALEVE CAPLET/TABLET,MIDOL EXTENDED RELIEF CAPLET [Suspect]
     Indication: GROIN PAIN
  3. PROPANOLOL [Concomitant]
  4. NORVASC [Concomitant]
  5. BENICAR [Concomitant]
  6. FLUOXETINE [Concomitant]
     Indication: DEPRESSION
  7. TYLENOL [PARACETAMOL] [Concomitant]

REACTIONS (5)
  - Faeces discoloured [None]
  - Melaena [None]
  - Faeces discoloured [Not Recovered/Not Resolved]
  - Abdominal pain [Recovered/Resolved]
  - Drug ineffective [None]
